FAERS Safety Report 4722792-4 (Version None)
Quarter: 2005Q3

REPORT INFORMATION
  Report Type: 
  Country: None (occurrence: None)
  Receive Date: 20050722
  Receipt Date: 20050609
  Transmission Date: 20060218
  Serious: Yes (Life-Threatening, Hospitalization)
  Sender: FDA-Public Use
  Company Number: PHEH2005US06505

PATIENT
  Age: 75 Year
  Sex: Female
  Weight: 74 kg

DRUGS (9)
  1. ZELNORM [Suspect]
     Indication: CONSTIPATION
     Dosage: 1/2 OF 6 MG BID
     Route: 048
     Dates: start: 20050421, end: 20050506
  2. MORPHINE [Concomitant]
     Indication: PAIN
     Dates: start: 20030401
  3. LISINOPRIL [Concomitant]
     Dates: start: 20031001
  4. ATENOLOL [Concomitant]
     Dosage: 50 MG, UNK
     Dates: start: 20040501
  5. BUSPAR [Concomitant]
     Dosage: 10 MG, UNK
     Dates: start: 20040501
  6. MIRALAX [Concomitant]
     Dates: start: 20041001
  7. LEVOXYL [Concomitant]
     Dates: start: 20010101
  8. EFFEXOR XR [Concomitant]
     Dates: start: 20040501
  9. GLUCOSAMINE [Concomitant]
     Dates: start: 20041001

REACTIONS (13)
  - ABDOMINAL PAIN [None]
  - COLECTOMY [None]
  - COLITIS ISCHAEMIC [None]
  - COLOSTOMY [None]
  - CONDITION AGGRAVATED [None]
  - DIARRHOEA HAEMORRHAGIC [None]
  - INTESTINAL INFARCTION [None]
  - INTESTINAL ULCER [None]
  - MUCOSAL HAEMORRHAGE [None]
  - OEDEMA [None]
  - OEDEMA MUCOSAL [None]
  - SHOCK [None]
  - VASCULAR DEMENTIA [None]
